FAERS Safety Report 23388077 (Version 1)
Quarter: 2024Q1

REPORT INFORMATION
  Report Type: Spontaneous
  Country: US (occurrence: None)
  Receive Date: 20240110
  Receipt Date: 20240110
  Transmission Date: 20240410
  Serious: Yes (Hospitalization)
  Sender: FDA-Public Use
  Company Number: None

PATIENT
  Age: 51 Year
  Sex: Male
  Weight: 102.15 kg

DRUGS (1)
  1. RYSTIGGO [Suspect]
     Active Substance: ROZANOLIXIZUMAB-NOLI
     Indication: Myasthenia gravis
     Dates: start: 20231010

REACTIONS (8)
  - Syncope [None]
  - Respiratory symptom [None]
  - Malaise [None]
  - Dizziness [None]
  - Balance disorder [None]
  - Vomiting [None]
  - Cardiac failure [None]
  - Coronary artery disease [None]

NARRATIVE: CASE EVENT DATE: 20240104
